FAERS Safety Report 7803993-5 (Version None)
Quarter: 2011Q4

REPORT INFORMATION
  Report Type: 
  Country: None (occurrence: None)
  Receive Date: 20111010
  Receipt Date: 20110929
  Transmission Date: 20120403
  Serious: Yes (Other)
  Sender: FDA-Public Use
  Company Number: US-JNJFOC-20111000787

PATIENT
  Sex: Female
  Weight: 84.37 kg

DRUGS (5)
  1. FENTANYL-100 [Suspect]
     Indication: NECK PAIN
     Route: 062
     Dates: end: 20090101
  2. MOBIC [Concomitant]
     Indication: ARTHRITIS
     Route: 048
     Dates: start: 20030101
  3. DURAGESIC-100 [Suspect]
     Indication: NECK PAIN
     Route: 062
     Dates: start: 20090101
  4. SOMA [Concomitant]
     Indication: FIBROMYALGIA
     Route: 048
     Dates: start: 20030101
  5. HYDROCODONE BITARTRATE [Concomitant]
     Indication: FIBROMYALGIA
     Dosage: 10/500
     Route: 048
     Dates: start: 20030101

REACTIONS (10)
  - WITHDRAWAL SYNDROME [None]
  - INFLUENZA [None]
  - TREMOR [None]
  - PAIN [None]
  - CERVICAL MYELOPATHY [None]
  - DIZZINESS [None]
  - HEADACHE [None]
  - WRONG TECHNIQUE IN DRUG USAGE PROCESS [None]
  - PRODUCT QUALITY ISSUE [None]
  - STRESS [None]
